FAERS Safety Report 11758880 (Version 1)
Quarter: 2015Q4

REPORT INFORMATION
  Report Type: Spontaneous
  Country: US (occurrence: US)
  Receive Date: 20151120
  Receipt Date: 20151120
  Transmission Date: 20160304
  Serious: Yes (Hospitalization)
  Sender: FDA-Public Use
  Company Number: US-SMITH AND NEPHEW, INC-2015SMT00527

PATIENT
  Age: 44 Year
  Sex: Male
  Weight: 122.45 kg

DRUGS (1)
  1. REGRANEX [Suspect]
     Active Substance: BECAPLERMIN
     Indication: WOUND
     Dosage: UNK UNK, 1X/DAY
     Route: 061
     Dates: start: 20151010, end: 20151025

REACTIONS (1)
  - Wound infection staphylococcal [Recovering/Resolving]

NARRATIVE: CASE EVENT DATE: 20151025
